FAERS Safety Report 24168736 (Version 2)
Quarter: 2024Q3

REPORT INFORMATION
  Report Type: Spontaneous
  Country: CN (occurrence: CN)
  Receive Date: 20240802
  Receipt Date: 20240809
  Transmission Date: 20241017
  Serious: Yes (Hospitalization)
  Sender: AMGEN
  Company Number: CN-AMGEN-CHNSP2024151633

PATIENT
  Age: 61 Year
  Sex: Male

DRUGS (5)
  1. XGEVA [Suspect]
     Active Substance: DENOSUMAB
     Indication: Chemotherapy
     Dosage: 120 MILLIGRAM (1, 1)
     Route: 058
     Dates: start: 20240723, end: 20240723
  2. OXALIPLATIN [Suspect]
     Active Substance: OXALIPLATIN
     Indication: Chemotherapy
     Dosage: 150 MILLIGRAM (1, 1)
     Route: 042
     Dates: start: 20240720, end: 20240720
  3. DOCETAXEL [Suspect]
     Active Substance: DOCETAXEL\DOCETAXEL ANHYDROUS
     Indication: Chemotherapy
     Dosage: 80 MILLIGRAM (1, 1)
     Route: 042
     Dates: start: 20240720, end: 20240720
  4. SODIUM CHLORIDE [Suspect]
     Active Substance: SODIUM CHLORIDE
     Indication: Product used for unknown indication
     Dosage: 250 MILLILITER (1, 1)
     Route: 042
     Dates: start: 20240720, end: 20240720
  5. DEXTROSE [Suspect]
     Active Substance: DEXTROSE\DEXTROSE MONOHYDRATE
     Indication: Product used for unknown indication
     Dosage: 500 MILLILITER (1, 1)
     Route: 042
     Dates: start: 20240720, end: 20240720

REACTIONS (1)
  - Myelosuppression [Unknown]

NARRATIVE: CASE EVENT DATE: 20240723
